FAERS Safety Report 15718553 (Version 1)
Quarter: 2018Q4

REPORT INFORMATION
  Report Type: Spontaneous
  Country: CA (occurrence: CA)
  Receive Date: 20181213
  Receipt Date: 20181213
  Transmission Date: 20190205
  Serious: Yes (Hospitalization)
  Sender: FDA-Public Use
  Company Number: CA-TEVA-2018-CA-988172

PATIENT
  Sex: Female

DRUGS (2)
  1. AMIODARONE [Suspect]
     Active Substance: AMIODARONE
     Indication: VENTRICULAR TACHYCARDIA
  2. AMIODARONE [Suspect]
     Active Substance: AMIODARONE
     Indication: CARDIAC FAILURE
     Dosage: 1.5 DOSAGE FORMS DAILY;
     Route: 065

REACTIONS (1)
  - Rash pruritic [Unknown]
